FAERS Safety Report 12970479 (Version 1)
Quarter: 2016Q4

REPORT INFORMATION
  Report Type: Spontaneous
  Country: US (occurrence: US)
  Receive Date: 20161123
  Receipt Date: 20161123
  Transmission Date: 20170207
  Serious: Yes (Other)
  Sender: FDA-Public Use
  Company Number: PHEH2016US029966

PATIENT
  Sex: Female

DRUGS (1)
  1. RECLAST [Suspect]
     Active Substance: ZOLEDRONIC ACID
     Indication: PRODUCT USED FOR UNKNOWN INDICATION
     Dosage: UNK
     Route: 065
     Dates: start: 20161107

REACTIONS (9)
  - Chills [Unknown]
  - Arthralgia [Unknown]
  - Feeling abnormal [Unknown]
  - Muscle spasms [Unknown]
  - Fatigue [Unknown]
  - Pyrexia [Unknown]
  - Bone pain [Unknown]
  - Myalgia [Unknown]
  - Hypoaesthesia [Unknown]
